FAERS Safety Report 12957138 (Version 3)
Quarter: 2016Q4

REPORT INFORMATION
  Report Type: Spontaneous
  Country: US (occurrence: US)
  Receive Date: 20161118
  Receipt Date: 20161214
  Transmission Date: 20170207
  Serious: No
  Sender: FDA-Public Use
  Company Number: US-INCYTE CORPORATION-2016IN007124

PATIENT
  Age: 76 Year
  Sex: Female

DRUGS (4)
  1. JAKAFI [Suspect]
     Active Substance: RUXOLITINIB
     Indication: MYELOFIBROSIS
     Dosage: 5 MG, QD
     Route: 048
     Dates: start: 201610, end: 2016
  2. LIPITOR [Concomitant]
     Active Substance: ATORVASTATIN CALCIUM
     Indication: PRODUCT USED FOR UNKNOWN INDICATION
  3. JAKAFI [Suspect]
     Active Substance: RUXOLITINIB
     Dosage: 5 MG, Q 3 DAYS
     Route: 048
     Dates: start: 20161017, end: 20161103
  4. JAKAFI [Suspect]
     Active Substance: RUXOLITINIB
     Dosage: 5 MG, EVERY THREE DAYS
     Route: 048
     Dates: start: 20161116, end: 20161130

REACTIONS (8)
  - Laryngitis [Unknown]
  - Pyrexia [Unknown]
  - Malaise [Unknown]
  - Dehydration [Unknown]
  - Vomiting [Unknown]
  - Cough [Unknown]
  - Contusion [Unknown]
  - Respiratory tract congestion [Unknown]

NARRATIVE: CASE EVENT DATE: 201610
